FAERS Safety Report 4956283-2 (Version None)
Quarter: 2006Q1

REPORT INFORMATION
  Report Type: 
  Country: None (occurrence: None)
  Receive Date: 20060329
  Receipt Date: 20060308
  Transmission Date: 20060701
  Serious: Yes (Hospitalization)
  Sender: FDA-Public Use
  Company Number: DE-AVENTIS-200610641DE

PATIENT
  Age: 59 Year
  Sex: Female
  Weight: 76 kg

DRUGS (4)
  1. DOCETAXEL [Suspect]
     Indication: BREAST CANCER
     Route: 042
     Dates: start: 20060206, end: 20060206
  2. EPIRUBICIN [Suspect]
     Route: 042
     Dates: start: 20051114, end: 20051227
  3. FLUOROURACIL [Suspect]
     Route: 042
     Dates: start: 20051114, end: 20051227
  4. CYCLOPHOSPHAMIDE [Suspect]
     Route: 042
     Dates: start: 20051114, end: 20051227

REACTIONS (2)
  - INFLAMMATION OF WOUND [None]
  - WOUND DEHISCENCE [None]
